FAERS Safety Report 6228352-0 (Version None)
Quarter: 2009Q2

REPORT INFORMATION
  Report Type: 
  Country: None (occurrence: None)
  Receive Date: 20090612
  Receipt Date: 20090601
  Transmission Date: 20091009
  Serious: Yes (Other)
  Sender: FDA-Public Use
  Company Number: US-PFIZER INC-2005094665

PATIENT
  Sex: Male
  Weight: 99.8 kg

DRUGS (4)
  1. XANAX XR [Suspect]
     Indication: ANXIETY
     Route: 048
     Dates: start: 20031101
  2. XANAX XR [Suspect]
     Indication: NERVOUS SYSTEM DISORDER
     Dosage: UNK
     Dates: start: 20081101
  3. XANAX [Suspect]
     Indication: ANXIETY
     Dosage: DAILY
     Route: 065
     Dates: start: 20060301, end: 20060301
  4. XANAX [Suspect]
     Indication: NERVOUS SYSTEM DISORDER

REACTIONS (16)
  - ABDOMINAL DISCOMFORT [None]
  - ABDOMINAL DISTENSION [None]
  - BLOOD PRESSURE INCREASED [None]
  - CONSTIPATION [None]
  - DEHYDRATION [None]
  - DEPRESSED LEVEL OF CONSCIOUSNESS [None]
  - DRUG LEVEL CHANGED [None]
  - FEAR [None]
  - INTRACRANIAL PRESSURE INCREASED [None]
  - MALAISE [None]
  - MUSCLE SPASTICITY [None]
  - NIGHT SWEATS [None]
  - PARALYSIS [None]
  - PRODUCT QUALITY ISSUE [None]
  - SOMNOLENCE [None]
  - TREMOR [None]
